FAERS Safety Report 25319809 (Version 1)
Quarter: 2025Q2

REPORT INFORMATION
  Report Type: Spontaneous
  Country: US (occurrence: None)
  Receive Date: 20250515
  Receipt Date: 20250515
  Transmission Date: 20250716
  Serious: No
  Sender: FDA-CTU
  Company Number: None

PATIENT
  Age: 30 Year
  Sex: Female
  Weight: 141.75 kg

DRUGS (10)
  1. TIRZEPATIDE [Suspect]
     Active Substance: TIRZEPATIDE
     Indication: Weight decreased
     Route: 058
     Dates: start: 20250513
  2. METOPROLOL SUCCINATE [Concomitant]
     Active Substance: METOPROLOL SUCCINATE
  3. LISINOPRIL [Concomitant]
     Active Substance: LISINOPRIL
  4. SERTRALINE [Concomitant]
     Active Substance: SERTRALINE HYDROCHLORIDE
  5. PREGABALIN [Concomitant]
     Active Substance: PREGABALIN
  6. IMIPRAMINE [Concomitant]
     Active Substance: IMIPRAMINE
  7. SULINDAC [Concomitant]
     Active Substance: SULINDAC
  8. VITAMINS [Concomitant]
     Active Substance: VITAMINS
  9. BENFOTIAMINE [Concomitant]
     Active Substance: BENFOTIAMINE
  10. Tumeric complex [Concomitant]

REACTIONS (5)
  - Hyperaesthesia [None]
  - Neck pain [None]
  - Pain in extremity [None]
  - Back pain [None]
  - Abdominal pain [None]

NARRATIVE: CASE EVENT DATE: 20250514
